FAERS Safety Report 4653294-1 (Version None)
Quarter: 2005Q2

REPORT INFORMATION
  Report Type: 
  Country: None (occurrence: None)
  Receive Date: 20050503
  Receipt Date: 20050503
  Transmission Date: 20051028
  Serious: Yes (Life-Threatening, Hospitalization, Disabling, Other)
  Sender: FDA-Public Use
  Company Number: None

PATIENT
  Age: 70 Year
  Sex: Female
  Weight: 55.7924 kg

DRUGS (4)
  1. VIOXX [Suspect]
  2. CELEBREX [Suspect]
  3. ACIPHEX [Suspect]
  4. FLAGYL [Suspect]

REACTIONS (17)
  - ABDOMINAL DISTENSION [None]
  - BURNING SENSATION [None]
  - CHANGE OF BOWEL HABIT [None]
  - DIARRHOEA [None]
  - DRY THROAT [None]
  - GASTRIC DISORDER [None]
  - GASTROOESOPHAGEAL REFLUX DISEASE [None]
  - HICCUPS [None]
  - LIP DRY [None]
  - NASAL DRYNESS [None]
  - OEDEMA PERIPHERAL [None]
  - RASH GENERALISED [None]
  - RECTAL HAEMORRHAGE [None]
  - SENSORY DISTURBANCE [None]
  - SENSORY LOSS [None]
  - STOMACH DISCOMFORT [None]
  - VITAMIN B12 DEFICIENCY [None]
